FAERS Safety Report 12072722 (Version 1)
Quarter: 2016Q1

REPORT INFORMATION
  Report Type: Spontaneous
  Country: AU (occurrence: AU)
  Receive Date: 20160212
  Receipt Date: 20160212
  Transmission Date: 20160526
  Serious: Yes (Other)
  Sender: FDA-Public Use
  Company Number: AU-AUROBINDO-AUR-APL-2016-01171

PATIENT

DRUGS (2)
  1. PAMIDRONIC ACID [Suspect]
     Active Substance: PAMIDRONIC ACID
     Indication: PRODUCT USED FOR UNKNOWN INDICATION
     Route: 042
  2. ALENDRONIC ACID [Suspect]
     Active Substance: ALENDRONIC ACID
     Indication: PRODUCT USED FOR UNKNOWN INDICATION
     Route: 048

REACTIONS (11)
  - Periorbital oedema [Recovered/Resolved]
  - Eye pain [Recovered/Resolved]
  - Conjunctival hyperaemia [Recovered/Resolved]
  - Erythema [Recovered/Resolved]
  - Exophthalmos [Recovered/Resolved]
  - Eye inflammation [Recovered/Resolved]
  - Eye movement disorder [Recovered/Resolved]
  - Optic nerve disorder [Recovered/Resolved]
  - Conjunctival oedema [Recovered/Resolved]
  - Extraocular muscle disorder [Recovered/Resolved]
  - Blindness [Recovered/Resolved]
